FAERS Safety Report 6773229-5 (Version None)
Quarter: 2010Q2

REPORT INFORMATION
  Report Type: 
  Country: None (occurrence: None)
  Receive Date: 20100616
  Receipt Date: 20100429
  Transmission Date: 20101027
  Serious: No
  Sender: FDA-Public Use
  Company Number: US-ABBOTT-10P-163-0632853-00

PATIENT
  Sex: Female
  Weight: 104.42 kg

DRUGS (7)
  1. TRILIPIX [Suspect]
     Indication: BLOOD CHOLESTEROL INCREASED
     Dates: start: 20100311, end: 20100312
  2. SIMCOR [Suspect]
     Indication: BLOOD CHOLESTEROL INCREASED
     Dates: start: 20091201, end: 20100101
  3. CRESTOR [Concomitant]
     Indication: BLOOD CHOLESTEROL INCREASED
  4. BENICAR [Concomitant]
     Indication: HYPERTENSION
  5. CATAPRES [Concomitant]
     Indication: HYPERTENSION
  6. CARDIZEM [Concomitant]
     Indication: HYPERTENSION
  7. FOLATE [Concomitant]
     Indication: VITAMIN SUPPLEMENTATION

REACTIONS (1)
  - BLOOD GLUCOSE INCREASED [None]
